FAERS Safety Report 20618267 (Version 2)
Quarter: 2022Q2

REPORT INFORMATION
  Report Type: Spontaneous
  Country: GR (occurrence: GR)
  Receive Date: 20220321
  Receipt Date: 20220419
  Transmission Date: 20220721
  Serious: Yes (Other)
  Sender: FDA-Public Use
  Company Number: GR-MLMSERVICE-20220308-3421468-1

PATIENT
  Age: 21 Year

DRUGS (3)
  1. METHYLPREDNISOLONE [Suspect]
     Active Substance: METHYLPREDNISOLONE
     Indication: Crohn^s disease
     Dosage: 48 MG
  2. METHYLPREDNISOLONE [Suspect]
     Active Substance: METHYLPREDNISOLONE
     Dosage: 20 MG
  3. ESOMEPRAZOLE [Concomitant]
     Active Substance: ESOMEPRAZOLE
     Indication: Crohn^s disease
     Dosage: 40 MG, 2X/DAY

REACTIONS (6)
  - Herpes ophthalmic [Recovering/Resolving]
  - Herpes oesophagitis [Recovering/Resolving]
  - Superinfection viral [Recovering/Resolving]
  - Ulcer [Recovering/Resolving]
  - Human herpesvirus 7 infection [Recovering/Resolving]
  - Epstein-Barr virus infection [Recovering/Resolving]
